FAERS Safety Report 11597283 (Version 1)
Quarter: 2015Q4

REPORT INFORMATION
  Report Type: Spontaneous
  Country: US (occurrence: US)
  Receive Date: 20151006
  Receipt Date: 20151006
  Transmission Date: 20160304
  Serious: No
  Sender: FDA-Public Use
  Company Number: US-AMGEN-USASP2014079697

PATIENT
  Age: 41 Year
  Sex: Female

DRUGS (2)
  1. XGEVA [Suspect]
     Active Substance: DENOSUMAB
     Indication: PROPHYLAXIS
     Dosage: UNK
     Route: 065
     Dates: start: 2011
  2. HALAVEN [Concomitant]
     Active Substance: ERIBULIN MESYLATE

REACTIONS (2)
  - Bone pain [Not Recovered/Not Resolved]
  - Drug effect incomplete [Unknown]
